FAERS Safety Report 21839006 (Version 1)
Quarter: 2023Q1

REPORT INFORMATION
  Report Type: Spontaneous
  Country: US (occurrence: None)
  Receive Date: 20230108
  Receipt Date: 20230108
  Transmission Date: 20230417
  Serious: Yes (Hospitalization)
  Sender: FDA-Public Use
  Company Number: None

PATIENT
  Age: 73 Year
  Sex: Male
  Weight: 98.88 kg

DRUGS (1)
  1. NIRMATRELVIR\RITONAVIR [Suspect]
     Active Substance: NIRMATRELVIR\RITONAVIR
     Indication: COVID-19
     Dosage: 1 TAB BID PO
     Route: 048
     Dates: start: 20220923, end: 20220927

REACTIONS (7)
  - Lip swelling [None]
  - Swelling face [None]
  - Respiratory symptom [None]
  - Pharyngeal swelling [None]
  - Enlarged uvula [None]
  - Angioedema [None]
  - Pharyngeal erythema [None]

NARRATIVE: CASE EVENT DATE: 20220927
